FAERS Safety Report 13307593 (Version 1)
Quarter: 2017Q1

REPORT INFORMATION
  Report Type: Report from Study
  Country: US (occurrence: US)
  Receive Date: 20170308
  Receipt Date: 20170308
  Transmission Date: 20170428
  Serious: Yes (Hospitalization)
  Sender: FDA-Public Use
  Company Number: US-JNJFOC-20170308082

PATIENT
  Age: 58 Year
  Sex: Male

DRUGS (14)
  1. FLOMAX [Concomitant]
     Active Substance: TAMSULOSIN HYDROCHLORIDE
  2. DAPSONE. [Concomitant]
     Active Substance: DAPSONE
  3. NEXIUM [Concomitant]
     Active Substance: ESOMEPRAZOLE MAGNESIUM
  4. LORTAB [Concomitant]
     Active Substance: ACETAMINOPHEN\HYDROCODONE BITARTRATE
  5. LABETALOL [Concomitant]
     Active Substance: LABETALOL\LABETALOL HYDROCHLORIDE
  6. IMBRUVICA [Suspect]
     Active Substance: IBRUTINIB
     Indication: CHRONIC LYMPHOCYTIC LEUKAEMIA
     Route: 048
     Dates: start: 20140414
  7. ATIVAN [Concomitant]
     Active Substance: LORAZEPAM
  8. VALACYCLOVIR [Concomitant]
     Active Substance: VALACYCLOVIR HYDROCHLORIDE
  9. NIFEDIPINE. [Concomitant]
     Active Substance: NIFEDIPINE
  10. AVODART [Concomitant]
     Active Substance: DUTASTERIDE
  11. COREG [Concomitant]
     Active Substance: CARVEDILOL
  12. FENOFIBRATE. [Concomitant]
     Active Substance: FENOFIBRATE
  13. CLONIDINE. [Concomitant]
     Active Substance: CLONIDINE
  14. TEKTURNA [Concomitant]
     Active Substance: ALISKIREN HEMIFUMARATE

REACTIONS (1)
  - Blood pressure abnormal [Recovered/Resolved]

NARRATIVE: CASE EVENT DATE: 20170208
